FAERS Safety Report 5994954-X (Version None)
Quarter: 2008Q4

REPORT INFORMATION
  Report Type: 
  Country: None (occurrence: None)
  Receive Date: 20081212
  Receipt Date: 20080918
  Transmission Date: 20090506
  Serious: No
  Sender: FDA-Public Use
  Company Number: US-ABBOTT-08P-163-0477064-00

PATIENT
  Sex: Female

DRUGS (16)
  1. HUMIRA [Suspect]
     Indication: RHEUMATOID ARTHRITIS
     Route: 058
     Dates: start: 20070601, end: 20080601
  2. METHOTREXATE [Concomitant]
     Indication: DRUG USE FOR UNKNOWN INDICATION
  3. PREDNISONE TAB [Concomitant]
     Indication: DRUG USE FOR UNKNOWN INDICATION
  4. BUPROPION HCL [Concomitant]
     Indication: DRUG USE FOR UNKNOWN INDICATION
  5. SERTRALINE [Concomitant]
     Indication: DRUG USE FOR UNKNOWN INDICATION
  6. LORAZEPAM [Concomitant]
     Indication: DRUG USE FOR UNKNOWN INDICATION
  7. ESZOPICLONE [Concomitant]
     Indication: DRUG USE FOR UNKNOWN INDICATION
  8. FLAVINE ADENINE DINUCLEOTIDE [Concomitant]
     Indication: ALOPECIA
  9. OLANZAPINE [Concomitant]
     Indication: DRUG USE FOR UNKNOWN INDICATION
  10. OMEPRAZOLE [Concomitant]
     Indication: DRUG USE FOR UNKNOWN INDICATION
  11. FUROSEMIDE [Concomitant]
     Indication: DRUG USE FOR UNKNOWN INDICATION
  12. FENTANYL-100 [Concomitant]
     Indication: DRUG USE FOR UNKNOWN INDICATION
     Route: 062
  13. POTASSIUM CHLORIDE [Concomitant]
     Indication: DRUG USE FOR UNKNOWN INDICATION
  14. DULOXETINE HYDROCHLORIDE [Concomitant]
     Indication: DRUG USE FOR UNKNOWN INDICATION
  15. METRONIDAZOLE [Concomitant]
     Indication: DRUG USE FOR UNKNOWN INDICATION
  16. PRINZIDE [Concomitant]
     Indication: HYPERTENSION

REACTIONS (5)
  - ANXIETY [None]
  - ARTHRALGIA [None]
  - DEPRESSION [None]
  - GAIT DISTURBANCE [None]
  - RHEUMATOID ARTHRITIS [None]
